FAERS Safety Report 10215251 (Version 2)
Quarter: 2014Q3

REPORT INFORMATION
  Report Type: Report from Study
  Country: JP (occurrence: JP)
  Receive Date: 20140603
  Receipt Date: 20140901
  Transmission Date: 20150326
  Serious: Yes (Other)
  Sender: FDA-Public Use
  Company Number: PHHY2014JP067471

PATIENT
  Age: 53 Year
  Sex: Female
  Weight: 52 kg

DRUGS (12)
  1. AFINITOR [Suspect]
     Active Substance: EVEROLIMUS
     Dosage: 5 MG, DAILY
     Route: 048
     Dates: start: 20130626, end: 20130723
  2. SENNOSIDE [Concomitant]
     Active Substance: SENNOSIDES
     Dosage: 2 DF, UNK
     Route: 048
     Dates: start: 20121212
  3. CELECOX [Concomitant]
     Active Substance: CELECOXIB
     Dosage: 200 MG, UNK
     Route: 048
     Dates: start: 201209
  4. HACHIAZULE [Concomitant]
     Indication: PROPHYLAXIS
     Dosage: 4 G, UNK
     Dates: end: 20120221
  5. SANDOSTATIN LAR DEPOT [Concomitant]
     Active Substance: OCTREOTIDE ACETATE
     Indication: PANCREATIC NEUROENDOCRINE TUMOUR
     Route: 030
     Dates: start: 20130724
  6. HUMALOG [Concomitant]
     Active Substance: INSULIN LISPRO
     Indication: PROPHYLAXIS
     Dosage: 18 IU, UNK
  7. AFINITOR [Suspect]
     Active Substance: EVEROLIMUS
     Indication: PANCREATIC NEUROENDOCRINE TUMOUR
     Dosage: 10 MG, DAILY
     Route: 048
     Dates: start: 20120203, end: 20130625
  8. LASIX [Concomitant]
     Active Substance: FUROSEMIDE
     Dosage: 40 MG, UNK
     Route: 048
  9. NOVAMIN [Concomitant]
     Active Substance: PROCHLORPERAZINE MALEATE
     Dosage: 3 DF, UNK
     Route: 048
     Dates: start: 20121212, end: 20130110
  10. CINAL [Concomitant]
     Active Substance: ASCORBIC ACID\CALCIUM PANTOTHENATE
     Dosage: 3 G, UNK
     Dates: end: 20120209
  11. VOLTAREN ^CIBA-GEIGY^ [Concomitant]
     Dosage: 50 MG, UNK
     Route: 048
     Dates: start: 20120912
  12. LAXOBERON [Concomitant]
     Active Substance: SODIUM PICOSULFATE
     Dosage: 10 ML, UNK
     Route: 048
     Dates: end: 20120206

REACTIONS (3)
  - Gamma-glutamyltransferase increased [Unknown]
  - Spinal compression fracture [Not Recovered/Not Resolved]
  - Malignant neoplasm progression [Not Recovered/Not Resolved]

NARRATIVE: CASE EVENT DATE: 20121114
